FAERS Safety Report 10926476 (Version 4)
Quarter: 2015Q2

REPORT INFORMATION
  Report Type: Spontaneous
  Country: JP (occurrence: None)
  Receive Date: 20150316
  Receipt Date: 20150417
  Transmission Date: 20150821
  Serious: Yes (Hospitalization)
  Sender: FDA-Public Use
  Company Number: 2015FE00803

PATIENT
  Age: 82 Year
  Sex: Male
  Weight: 75 kg

DRUGS (1)
  1. GONAX (DEGARELIX) POWDER AND SOLVENT FOR SOLUTION FOR INJECTION [Suspect]
     Active Substance: DEGARELIX
     Indication: PROSTATE CANCER
     Dosage: ONCE/SINGLE
     Route: 058
     Dates: start: 20131028, end: 20131028

REACTIONS (5)
  - Cerebral haemorrhage [None]
  - Haemorrhagic cerebral infarction [None]
  - Hypertension [None]
  - Bedridden [None]
  - Arterial thrombosis [None]

NARRATIVE: CASE EVENT DATE: 20140828
